FAERS Safety Report 5788878-0 (Version None)
Quarter: 2008Q2

REPORT INFORMATION
  Report Type: 
  Country: None (occurrence: None)
  Receive Date: 20080623
  Receipt Date: 20080611
  Transmission Date: 20081010
  Serious: Yes (Death, Hospitalization)
  Sender: FDA-Public Use
  Company Number: 2008BI010211

PATIENT
  Age: 52 Year
  Sex: Male

DRUGS (4)
  1. AVONEX [Suspect]
     Indication: MULTIPLE SCLEROSIS
  2. NEURONTIN [Concomitant]
  3. DILANTIN [Concomitant]
  4. COPAXONE [Concomitant]

REACTIONS (3)
  - CONVULSION [None]
  - DRUG HYPERSENSITIVITY [None]
  - PULMONARY EMBOLISM [None]
